FAERS Safety Report 7579524-4 (Version None)
Quarter: 2011Q2

REPORT INFORMATION
  Report Type: 
  Country: None (occurrence: None)
  Receive Date: 20110629
  Receipt Date: 20110616
  Transmission Date: 20111010
  Serious: Yes (Hospitalization)
  Sender: FDA-Public Use
  Company Number: CA-JNJFOC-20110609057

PATIENT
  Sex: Female
  Weight: 105 kg

DRUGS (13)
  1. REMICADE [Suspect]
     Indication: COLITIS ULCERATIVE
     Route: 042
     Dates: start: 20110422
  2. TYLENOL W/ CODEINE NO. 3 [Concomitant]
  3. MESALAMINE [Concomitant]
  4. PREDNISONE [Concomitant]
  5. ANTIBIOTIC CREAM [Concomitant]
  6. SYNTHROID [Concomitant]
  7. AZATHIOPRINE [Concomitant]
  8. LESCOL XL [Concomitant]
  9. REMICADE [Suspect]
     Route: 042
     Dates: start: 20100801
  10. DILTIAZEM [Concomitant]
  11. PAROXETINE HCL [Concomitant]
  12. NPH INSULIN [Concomitant]
  13. NOVORAPID INSULIN [Concomitant]

REACTIONS (4)
  - LACTOSE INTOLERANCE [None]
  - NAUSEA [None]
  - DIARRHOEA [None]
  - DEHYDRATION [None]
